FAERS Safety Report 12843936 (Version 1)
Quarter: 2016Q4

REPORT INFORMATION
  Report Type: Spontaneous
  Country: US (occurrence: US)
  Receive Date: 20161013
  Receipt Date: 20161013
  Transmission Date: 20170207
  Serious: Yes (Life-Threatening, Other)
  Sender: FDA-Public Use
  Company Number: US-GILEAD-2016-0237049

PATIENT
  Age: 81 Year
  Sex: Female

DRUGS (6)
  1. DEXAMETHASONE. [Suspect]
     Active Substance: DEXAMETHASONE
     Indication: PLASMA CELL MYELOMA
     Dosage: 20 MG, Q1WK
     Route: 048
     Dates: start: 2014
  2. LOSARTAN. [Suspect]
     Active Substance: LOSARTAN
     Indication: BLOOD PRESSURE ABNORMAL
     Dosage: 50 MG, QD
     Route: 065
     Dates: start: 1999
  3. GABAPENTIN. [Concomitant]
     Active Substance: GABAPENTIN
     Indication: NEUROPATHY PERIPHERAL
     Dosage: 900 MG, QD
     Route: 065
     Dates: start: 201404
  4. LENALIDOMIDE [Suspect]
     Active Substance: LENALIDOMIDE
     Indication: PLASMA CELL MYELOMA
     Dosage: 25 MG, UNK
     Route: 048
     Dates: start: 201412
  5. RANEXA [Suspect]
     Active Substance: RANOLAZINE
     Indication: ATRIAL SEPTAL DEFECT
     Dosage: 1000 MG, QD
     Route: 065
     Dates: start: 2015
  6. COLESTYRAMINE [Concomitant]
     Active Substance: CHOLESTYRAMINE

REACTIONS (3)
  - Muscle spasms [Recovered/Resolved with Sequelae]
  - Off label use [Unknown]
  - Paraesthesia [Recovered/Resolved with Sequelae]

NARRATIVE: CASE EVENT DATE: 20160815
